FAERS Safety Report 14274621 (Version 1)
Quarter: 2017Q4

REPORT INFORMATION
  Report Type: Report from Study
  Country: CN (occurrence: CN)
  Receive Date: 20171212
  Receipt Date: 20171212
  Transmission Date: 20180321
  Serious: Yes (Other)
  Sender: FDA-Public Use
  Company Number: CN-ROCHE-2033239

PATIENT

DRUGS (2)
  1. CAPECITABINE. [Suspect]
     Active Substance: CAPECITABINE
     Indication: METASTATIC GASTRIC CANCER
     Dosage: FOR CONSECUTIVE 14 DAYS, AND THEN WAS STOPPED FOR 7 DAYS, WHICH WERE REPEATED EVERY 3 WEEKS.
     Route: 048
  2. IRINOTECAN [Suspect]
     Active Substance: IRINOTECAN
     Indication: METASTATIC GASTRIC CANCER
     Dosage: 40-60 MG/M2 ADDED WITH 500 ML OF 5% GLUCOSE OR 0.9% SODIUM CHLORIDE INJECTION FOR 90 MINUTES ON THE
     Route: 041

REACTIONS (8)
  - Alopecia [Unknown]
  - Vomiting [Unknown]
  - Granulocytopenia [Unknown]
  - Thrombocytopenia [Unknown]
  - Nausea [Unknown]
  - Diarrhoea [Unknown]
  - Ill-defined disorder [Unknown]
  - Anaemia [Unknown]
